FAERS Safety Report 22646239 (Version 1)
Quarter: 2023Q2

REPORT INFORMATION
  Report Type: Spontaneous
  Country: GB (occurrence: GB)
  Receive Date: 20230627
  Receipt Date: 20230627
  Transmission Date: 20230721
  Serious: Yes (Other)
  Sender: FDA-Public Use
  Company Number: GB-MLMSERVICE-20230615-4351365-1

PATIENT
  Age: 97 Year
  Sex: Female

DRUGS (2)
  1. ONDANSETRON [Suspect]
     Active Substance: ONDANSETRON
     Indication: Vomiting
     Dosage: 4 MG
     Route: 042
  2. SODIUM CHLORIDE [Concomitant]
     Active Substance: SODIUM CHLORIDE
     Indication: Hyponatraemia
     Dosage: 1L OF 0.9% INFUSION
     Route: 042

REACTIONS (7)
  - Apnoeic attack [Recovered/Resolved]
  - Unresponsive to stimuli [Recovered/Resolved]
  - Cardiac arrest [Unknown]
  - Bradycardia [Recovered/Resolved]
  - Electrocardiogram QT prolonged [Unknown]
  - Torsade de pointes [Unknown]
  - Cyanosis [Recovered/Resolved]
